FAERS Safety Report 23230643 (Version 1)
Quarter: 2023Q4

REPORT INFORMATION
  Report Type: Spontaneous
  Country: US (occurrence: None)
  Receive Date: 20231123
  Receipt Date: 20231123
  Transmission Date: 20240110
  Serious: Yes (Disabling, Other)
  Sender: FDA-Public Use
  Company Number: None

PATIENT
  Age: 63 Year
  Sex: Male
  Weight: 76.5 kg

DRUGS (1)
  1. POLYVINYL ALCOHOL EYE DROPS 1,4 % W/V [Suspect]
     Active Substance: POLYVINYL ALCOHOL
     Dosage: FREQUENCY : 4 TIMES A DAY;?
     Route: 047
     Dates: start: 20210504, end: 20231025

REACTIONS (1)
  - Blindness [None]

NARRATIVE: CASE EVENT DATE: 20230816
